FAERS Safety Report 5525780-3 (Version None)
Quarter: 2007Q4

REPORT INFORMATION
  Report Type: 
  Country: None (occurrence: None)
  Receive Date: 20071126
  Receipt Date: 20071116
  Transmission Date: 20080405
  Serious: Yes (Hospitalization, Other)
  Sender: FDA-Public Use
  Company Number: US-BRISTOL-MYERS SQUIBB COMPANY-13986146

PATIENT
  Age: 45 Year
  Sex: Male
  Weight: 84 kg

DRUGS (2)
  1. ABILIFY [Suspect]
     Dosage: SECOND DOSE ON 13-NOV-2007
     Route: 048
     Dates: start: 20071112
  2. LOTREL [Concomitant]

REACTIONS (6)
  - BLOOD PRESSURE INCREASED [None]
  - CHEST PAIN [None]
  - DISORIENTATION [None]
  - HYPOAESTHESIA [None]
  - MYOCARDIAL INFARCTION [None]
  - NAUSEA [None]
